FAERS Safety Report 8512578-7 (Version None)
Quarter: 2012Q3

REPORT INFORMATION
  Report Type: 
  Country: None (occurrence: None)
  Receive Date: 20120716
  Receipt Date: 20120703
  Transmission Date: 20120928
  Serious: Yes (Hospitalization)
  Sender: FDA-Public Use
  Company Number: FR-MSD-1207FRA003310

PATIENT

DRUGS (4)
  1. GLUCOPHAGE [Suspect]
     Indication: TYPE 2 DIABETES MELLITUS
     Dosage: 1000 MG, QD
     Route: 048
     Dates: end: 20120509
  2. METFORMIN HCL [Suspect]
     Indication: TYPE 2 DIABETES MELLITUS
     Dosage: 1 DF, BID
     Route: 048
     Dates: start: 20120305, end: 20120427
  3. OLMESARTAN MEDOXOMIL AND HYDROCHLOROTHIZIDE [Suspect]
     Dosage: 2 DF, QD
     Route: 048
     Dates: end: 20120509
  4. FLUVASTATIN SODIUM [Suspect]
     Dosage: UNK
     Route: 048
     Dates: end: 20120509

REACTIONS (1)
  - DRUG RASH WITH EOSINOPHILIA AND SYSTEMIC SYMPTOMS [None]
